FAERS Safety Report 4363230-3 (Version None)
Quarter: 2004Q2

REPORT INFORMATION
  Report Type: 
  Country: None (occurrence: None)
  Receive Date: 20040517
  Receipt Date: 20040203
  Transmission Date: 20050107
  Serious: No
  Sender: FDA-Public Use
  Company Number: S04-USA-00752-01

PATIENT
  Age: 89 Year
  Sex: Male

DRUGS (9)
  1. NAMENDA [Suspect]
     Indication: DEMENTIA ALZHEIMER'S TYPE
     Dosage: 10 MG QD PO
     Route: 048
     Dates: start: 20040128, end: 20040207
  2. NAMENDA [Suspect]
     Indication: DEMENTIA ALZHEIMER'S TYPE
     Dosage: 5 MG QD PO
     Route: 048
     Dates: start: 20040208
  3. NAMENDA [Suspect]
     Indication: DEMENTIA ALZHEIMER'S TYPE
     Dosage: 5 MG QD PO
     Route: 048
     Dates: start: 20040121, end: 20040127
  4. LEVOTHYROXINE SODIUM [Concomitant]
  5. LISINOPRIL [Concomitant]
  6. HYDROCHLOROTHIAZIDE [Concomitant]
  7. EXELON [Concomitant]
  8. POTASSIUM CHLORIDE [Concomitant]
  9. ASPIRIN [Concomitant]

REACTIONS (5)
  - ANGER [None]
  - CONFUSIONAL STATE [None]
  - DIZZINESS [None]
  - FLUSHING [None]
  - JOINT SWELLING [None]
